FAERS Safety Report 5795183-5 (Version None)
Quarter: 2008Q2

REPORT INFORMATION
  Report Type: 
  Country: None (occurrence: None)
  Receive Date: 20080626
  Receipt Date: 20080620
  Transmission Date: 20081010
  Serious: Yes (Death)
  Sender: FDA-Public Use
  Company Number: 2008SP012343

PATIENT
  Age: 77 Year
  Sex: Female

DRUGS (1)
  1. EPTIFIBATIDE (S-P) (EPTIFIBATIDE) [Suspect]
     Indication: PERCUTANEOUS CORONARY INTERVENTION
     Dosage: ; IV
     Route: 042
     Dates: start: 20080615, end: 20080615

REACTIONS (3)
  - BACK PAIN [None]
  - HAEMORRHAGE [None]
  - SHOCK [None]
